FAERS Safety Report 4827436-9 (Version None)
Quarter: 2005Q4

REPORT INFORMATION
  Report Type: 
  Country: None (occurrence: None)
  Receive Date: 20051114
  Receipt Date: 20050811
  Transmission Date: 20060501
  Serious: Yes (Death)
  Sender: FDA-Public Use
  Company Number: US-MERCK-0508USA02099

PATIENT
  Age: 35 Year
  Sex: Male
  Weight: 73 kg

DRUGS (21)
  1. DARVOCET-N 100 [Concomitant]
     Indication: PAIN
     Route: 065
     Dates: start: 20000502, end: 20001201
  2. DAYPRO [Concomitant]
     Indication: PAIN
     Route: 065
     Dates: start: 20000926, end: 20001201
  3. EMPIRIN [Concomitant]
     Indication: PAIN
     Route: 065
  4. VIOXX [Suspect]
     Indication: INTERVERTEBRAL DISC PROTRUSION
     Route: 048
     Dates: start: 20001024, end: 20010101
  5. ALLEGRA [Concomitant]
     Indication: HYPERSENSITIVITY
     Route: 065
  6. AMANTADINE HYDROCHLORIDE [Concomitant]
     Indication: PARKINSON'S DISEASE
     Route: 065
  7. ASTELIN [Concomitant]
     Indication: HYPERSENSITIVITY
     Route: 065
  8. HYDROCODONE HYDROCHLORIDE [Concomitant]
     Indication: PAIN
     Route: 065
  9. MOTRIN [Concomitant]
     Indication: PAIN
     Route: 065
  10. METHYLPREDNISOLONE [Concomitant]
     Indication: PAIN
     Route: 065
  11. NEURONTIN [Concomitant]
     Indication: PAIN
     Route: 065
     Dates: start: 20000512, end: 20001201
  12. NORTRIPTYLINE [Concomitant]
     Indication: PAIN
     Route: 065
     Dates: start: 20000920, end: 20001201
  13. NONSTEROIDAL ANTI-INFLAMMATORY DRUG (UNSPECIFIED) [Concomitant]
     Indication: PAIN
     Route: 065
  14. [THERAPY UNSPECIFIED] [Concomitant]
     Route: 065
  15. PROPOXYPHENE HYDROCHLORIDE [Concomitant]
     Indication: PAIN
     Route: 065
     Dates: start: 20000502, end: 20001201
  16. RELAFEN [Concomitant]
     Indication: PAIN
     Route: 065
  17. TRAZODONE HYDROCHLORIDE [Concomitant]
     Indication: DEPRESSION
     Route: 065
  18. TYLENOL W/ CODEINE NO. 3 [Concomitant]
     Indication: PAIN
     Route: 065
  19. UNIVASC [Concomitant]
     Indication: HYPERTENSION
     Route: 065
  20. VICODIN [Concomitant]
     Indication: PAIN
     Route: 065
     Dates: start: 19991101
  21. ZOLOFT [Concomitant]
     Indication: ANXIETY
     Route: 065

REACTIONS (4)
  - ARTERIOSCLEROSIS CORONARY ARTERY [None]
  - CORONARY ARTERY THROMBOSIS [None]
  - MYOCARDIAL INFARCTION [None]
  - PULMONARY OEDEMA [None]
